FAERS Safety Report 14150022 (Version 3)
Quarter: 2017Q4

REPORT INFORMATION
  Report Type: Report from Study
  Country: US (occurrence: US)
  Receive Date: 20171101
  Receipt Date: 20171220
  Transmission Date: 20180321
  Serious: Yes (Death, Other)
  Sender: FDA-Public Use
  Company Number: US-SEATTLE GENETICS-2017SGN02696

PATIENT
  Sex: Male

DRUGS (26)
  1. ALBUTEROL                          /00139501/ [Concomitant]
     Active Substance: ALBUTEROL
     Indication: CHRONIC OBSTRUCTIVE PULMONARY DISEASE
     Dosage: 90 ?G, PRN
     Route: 055
  2. DICYCLOMINE                        /00068601/ [Concomitant]
     Active Substance: DICYCLOMINE HYDROCHLORIDE
     Indication: IRRITABLE BOWEL SYNDROME
     Dosage: 10 MG, UNK
     Route: 048
  3. LIDOCAINE W/PRILOCAINE [Concomitant]
     Active Substance: LIDOCAINE\PRILOCAINE
     Indication: SKIN IRRITATION
     Route: 061
  4. METHOCARBAMOL. [Concomitant]
     Active Substance: METHOCARBAMOL
     Indication: MUSCLE RELAXANT THERAPY
  5. OCULAR LUBRICANT                   /00445101/ [Concomitant]
     Indication: DRY EYE
     Dosage: UNK
     Route: 047
  6. ACETAMINOPHEN W/OXYCODONE [Concomitant]
     Active Substance: ACETAMINOPHEN\OXYCODONE HYDROCHLORIDE
     Indication: PAIN
     Route: 048
  7. FOLIC ACID. [Concomitant]
     Active Substance: FOLIC ACID
     Indication: CHRONIC KIDNEY DISEASE
     Dosage: 1 MG, UNK
     Route: 048
  8. HEPARIN FLUSH [Concomitant]
     Active Substance: HEPARIN SODIUM
     Indication: CATHETER MANAGEMENT
     Dosage: 4 ML, QMONTH
     Route: 042
  9. HEPARIN FLUSH [Concomitant]
     Active Substance: HEPARIN SODIUM
     Dosage: UNK UNK, PRN
     Route: 042
  10. LISINOPRIL. [Concomitant]
     Active Substance: LISINOPRIL
     Indication: HYPERTENSION
     Dosage: 20 MG, UNK
     Route: 048
  11. TEMAZEPAM. [Concomitant]
     Active Substance: TEMAZEPAM
     Indication: INSOMNIA
     Dosage: 15 MG, UNK
     Route: 048
  12. AMLODIPINE [Concomitant]
     Active Substance: AMLODIPINE BESYLATE
     Indication: HYPERTENSION
     Dosage: 10 MG, QD
     Route: 048
  13. DOCUSATE [Concomitant]
     Active Substance: DOCUSATE
     Indication: CONSTIPATION
     Dosage: 100 MG, UNK
     Route: 048
  14. BRENTUXIMAB VEDOTIN [Suspect]
     Active Substance: BRENTUXIMAB VEDOTIN
     Indication: MYCOSIS FUNGOIDES
     Dosage: 1.8 MG/KG, Q3WEEKS
     Route: 042
     Dates: start: 20170831, end: 20170921
  15. FLUOCINONIDE. [Concomitant]
     Active Substance: FLUOCINONIDE
     Indication: PRURITUS
     Route: 061
  16. HYDROXYZINE [Concomitant]
     Active Substance: HYDROXYZINE HYDROCHLORIDE
     Indication: PRURITUS
     Dosage: 25 MG, UNK
     Route: 048
  17. OLODATEROL + TIOTROPIUM [Concomitant]
     Indication: CHRONIC OBSTRUCTIVE PULMONARY DISEASE
     Route: 055
  18. PREDNISONE. [Concomitant]
     Active Substance: PREDNISONE
     Indication: SKIN IRRITATION
     Dosage: 30 MG, QD
     Route: 048
  19. AMARYL [Concomitant]
     Active Substance: GLIMEPIRIDE
     Indication: HYPERGLYCAEMIA
     Dosage: 1 MG, QD
     Route: 048
  20. PROCHLORPERAZINE. [Concomitant]
     Active Substance: PROCHLORPERAZINE
     Indication: PROPHYLAXIS OF NAUSEA AND VOMITING
     Dosage: 10 MG, UNK
     Route: 048
  21. FEBUXOSTAT. [Concomitant]
     Active Substance: FEBUXOSTAT
     Indication: GOUT
     Dosage: 40 MG, QD
     Route: 048
  22. FUROSEMIDE. [Concomitant]
     Active Substance: FUROSEMIDE
     Indication: OEDEMA
     Dosage: 40 MG, UNK
     Route: 048
  23. METHOCARBAMOL. [Concomitant]
     Active Substance: METHOCARBAMOL
     Indication: PAIN
     Dosage: 750 MG, UNK
     Route: 048
  24. METOPROLOL TARTRATE. [Concomitant]
     Active Substance: METOPROLOL TARTRATE
     Indication: HYPERTENSION
     Dosage: 12.5 MG, QD
     Route: 048
  25. DEXILANT [Concomitant]
     Active Substance: DEXLANSOPRAZOLE
     Indication: GASTROOESOPHAGEAL REFLUX DISEASE
     Dosage: 60 MG, QD
     Route: 048
  26. LEVSIN [Concomitant]
     Active Substance: HYOSCYAMINE SULFATE
     Indication: IRRITABLE BOWEL SYNDROME
     Dosage: 0.125 MG, UNK
     Route: 048

REACTIONS (3)
  - Death [Fatal]
  - Hypotension [Recovering/Resolving]
  - Hypertension [Not Recovered/Not Resolved]

NARRATIVE: CASE EVENT DATE: 20170927
